FAERS Safety Report 7343622-0 (Version None)
Quarter: 2011Q1

REPORT INFORMATION
  Report Type: 
  Country: None (occurrence: None)
  Receive Date: 20110310
  Receipt Date: 20100729
  Transmission Date: 20110831
  Serious: No
  Sender: FDA-Public Use
  Company Number: A0872912A

PATIENT
  Age: 54 Year
  Sex: Male

DRUGS (2)
  1. NICORETTE [Suspect]
  2. NICOTINE POLACRILEX [Suspect]

REACTIONS (6)
  - ORAL DISCOMFORT [None]
  - ANXIETY [None]
  - GLOSSITIS [None]
  - WITHDRAWAL SYNDROME [None]
  - NICOTINE DEPENDENCE [None]
  - TONGUE DISORDER [None]
